FAERS Safety Report 23289719 (Version 1)
Quarter: 2023Q4

REPORT INFORMATION
  Report Type: Spontaneous
  Country: US (occurrence: US)
  Receive Date: 20231212
  Receipt Date: 20231212
  Transmission Date: 20240110
  Serious: Yes (Other)
  Sender: FDA-Public Use
  Company Number: US-PFIZER INC-PV202300084031

PATIENT
  Age: 67 Year
  Sex: Female
  Weight: 69.6 kg

DRUGS (6)
  1. IBRANCE [Suspect]
     Active Substance: PALBOCICLIB
     Indication: Breast cancer female
     Dosage: 100 MG, CYCLIC, TAKE 1 TABLET BY MOUTH DAILY FOR 21 DAYS, FOLLOWED BY 7 DAYS OFF FOR A 28 DAY CYCLE
     Route: 048
     Dates: start: 202105
  2. IBRANCE [Suspect]
     Active Substance: PALBOCICLIB
     Indication: Hormone receptor positive breast cancer
     Dosage: 100 MG, CYCLIC, TAKE 1 TABLET BY MOUTH DAILY FOR 21 DAYS, FOLLOWED BY 7 DAYS OFF FOR A 28 DAY CYCLE
     Route: 048
     Dates: start: 20230930, end: 20231019
  3. IBRANCE [Suspect]
     Active Substance: PALBOCICLIB
     Indication: Metastasis
     Dosage: 100 MG, CYCLIC, TAKE 1 TABLET BY MOUTH DAILY FOR 21 DAYS, FOLLOWED BY 7 DAYS OFF FOR A 28 DAY CYCLE
     Route: 048
  4. LETROZOLE [Suspect]
     Active Substance: LETROZOLE
     Indication: Breast cancer female
     Dosage: UNK
     Dates: start: 202105
  5. LETROZOLE [Suspect]
     Active Substance: LETROZOLE
     Indication: Hormone receptor positive breast cancer
  6. LETROZOLE [Suspect]
     Active Substance: LETROZOLE
     Indication: Metastasis

REACTIONS (2)
  - Leukopenia [Unknown]
  - Infection [Unknown]
